FAERS Safety Report 12624498 (Version 2)
Quarter: 2016Q3

REPORT INFORMATION
  Report Type: Spontaneous
  Country: BR (occurrence: BR)
  Receive Date: 20160805
  Receipt Date: 20160902
  Transmission Date: 20161109
  Serious: Yes (Other)
  Sender: FDA-Public Use
  Company Number: BR-AMGEN-BRASP2013039349

PATIENT
  Age: 61 Year
  Sex: Female
  Weight: 81 kg

DRUGS (22)
  1. PREDNISONE. [Concomitant]
     Active Substance: PREDNISONE
     Dosage: 1 TABLET (STRENGTH 5 MG), ONCE A DAY
     Route: 048
  2. FOLIC ACID. [Concomitant]
     Active Substance: FOLIC ACID
     Dosage: 5MG- 1 TABLET ONCE WEEKLY
     Route: 048
  3. ARAVA [Concomitant]
     Active Substance: LEFLUNOMIDE
     Dosage: 1 TABLET, ONCE A DAY
     Route: 048
  4. CHLOROQUINE. [Concomitant]
     Active Substance: CHLOROQUINE
     Dosage: 1 TABLET (STRENGTH 150 MG), ONCE A DAY
     Route: 048
  5. PREDNISONE. [Concomitant]
     Active Substance: PREDNISONE
     Dosage: 1 TABLET (STRENGTH 5 MG), ONCE A DAY
     Route: 048
  6. METHOTREXATE. [Concomitant]
     Active Substance: METHOTREXATE
     Dosage: UNK
     Route: 048
  7. ENALAPRIL [Concomitant]
     Active Substance: ENALAPRIL
     Dosage: 10MG- 1 TABLET TWICE A DAY
     Route: 048
  8. ENBREL [Suspect]
     Active Substance: ETANERCEPT
     Indication: RHEUMATOID ARTHRITIS
     Dosage: 50 MG, ONCE WEEKLY
     Route: 058
     Dates: start: 20100916, end: 2013
  9. METHOTREXATE. [Concomitant]
     Active Substance: METHOTREXATE
     Dosage: UNK
     Route: 048
  10. ENBREL [Suspect]
     Active Substance: ETANERCEPT
     Dosage: 25 MG, UNK
     Route: 065
     Dates: start: 2012
  11. ENALAPRIL [Concomitant]
     Active Substance: ENALAPRIL
     Dosage: 10MG- 1 TABLET TWICE A DAY
     Route: 048
  12. ATENOLOL. [Concomitant]
     Active Substance: ATENOLOL
     Dosage: 50MG- 1 TABLET TWICE A DAY
     Route: 048
  13. ATENOLOL. [Concomitant]
     Active Substance: ATENOLOL
     Dosage: 50MG- 1 TABLET TWICE A DAY
     Route: 048
  14. PREDNISONE. [Concomitant]
     Active Substance: PREDNISONE
     Dosage: 1 TABLET (STRENGTH 5 MG), ONCE A DAY
     Route: 048
  15. FOLIC ACID. [Concomitant]
     Active Substance: FOLIC ACID
     Dosage: 5MG- 1 TABLET ONCE WEEKLY
     Route: 048
  16. CHLOROQUINE. [Concomitant]
     Active Substance: CHLOROQUINE
     Dosage: 1 TABLET (150 MG), 1X/DAY
     Route: 048
  17. METHOTREXATE. [Concomitant]
     Active Substance: METHOTREXATE
     Dosage: UNK
     Route: 048
  18. INFLUENZA VACCINE [Suspect]
     Active Substance: INFLUENZA VIRUS VACCINE
     Indication: PRODUCT USED FOR UNKNOWN INDICATION
     Dosage: UNK
     Route: 065
     Dates: start: 201304
  19. ENALAPRIL [Concomitant]
     Active Substance: ENALAPRIL
     Dosage: 10MG- 1 TABLET TWICE A DAY
     Route: 048
  20. FOLIC ACID. [Concomitant]
     Active Substance: FOLIC ACID
     Dosage: 1 TABLET (5 MG), 1X/DAY
     Route: 048
  21. ATENOLOL. [Concomitant]
     Active Substance: ATENOLOL
     Dosage: 50MG- 1 TABLET TWICE A DAY
     Route: 048
  22. OMEPRAZOL [Concomitant]
     Active Substance: OMEPRAZOLE
     Dosage: 20 MG- 1 TABLET ONCE A DAY
     Route: 048

REACTIONS (10)
  - Influenza [Unknown]
  - Blindness [Unknown]
  - Infection [Unknown]
  - Eye pain [Not Recovered/Not Resolved]
  - Arthralgia [Unknown]
  - Conjunctivitis [Unknown]
  - Dry eye [Not Recovered/Not Resolved]
  - Dry mouth [Not Recovered/Not Resolved]
  - Pain [Unknown]
  - Oropharyngeal pain [Not Recovered/Not Resolved]

NARRATIVE: CASE EVENT DATE: 2013
